FAERS Safety Report 14156136 (Version 1)
Quarter: 2017Q4

REPORT INFORMATION
  Report Type: Report from Study
  Country: BR (occurrence: BR)
  Receive Date: 20171103
  Receipt Date: 20171103
  Transmission Date: 20180321
  Serious: Yes (Other)
  Sender: FDA-Public Use
  Company Number: PHHY2017BR160418

PATIENT
  Sex: Female

DRUGS (3)
  1. LUMIGAN [Concomitant]
     Active Substance: BIMATOPROST
     Indication: PRODUCT USED FOR UNKNOWN INDICATION
     Dosage: UNK UNK, QD AT NIGHT
     Route: 047
  2. AZOPT [Suspect]
     Active Substance: BRINZOLAMIDE
     Dosage: UNK UNK, TID
     Route: 047
  3. AZOPT [Suspect]
     Active Substance: BRINZOLAMIDE
     Indication: PRODUCT USED FOR UNKNOWN INDICATION
     Dosage: UNK, BID (IN THE MORNING AND AT NIGHT)
     Route: 047

REACTIONS (3)
  - Intraocular pressure increased [Unknown]
  - Glaucoma [Unknown]
  - Vitreous detachment [Unknown]
